FAERS Safety Report 12353806 (Version 1)
Quarter: 2016Q2

REPORT INFORMATION
  Report Type: Spontaneous
  Country: US (occurrence: US)
  Receive Date: 20160511
  Receipt Date: 20160511
  Transmission Date: 20160815
  Serious: Yes (Other)
  Sender: FDA-Public Use
  Company Number: US-HOSPIRA-3278476

PATIENT
  Age: 53 Year
  Sex: Male

DRUGS (1)
  1. NORADRENALINE TARTRATE [Suspect]
     Active Substance: NOREPINEPHRINE BITARTRATE
     Indication: BLOOD PRESSURE IMMEASURABLE
     Dosage: 4 MG/1000 CC
     Route: 041

REACTIONS (2)
  - Skin ulcer [Not Recovered/Not Resolved]
  - Necrosis ischaemic [Not Recovered/Not Resolved]
